FAERS Safety Report 24594987 (Version 2)
Quarter: 2024Q4

REPORT INFORMATION
  Report Type: Spontaneous
  Country: FI (occurrence: FI)
  Receive Date: 20241108
  Receipt Date: 20241118
  Transmission Date: 20250115
  Serious: Yes (Hospitalization)
  Sender: AMERICAN REGENT
  Company Number: FI-AMERICAN REGENT INC-2024004155

PATIENT
  Age: 42 Year
  Sex: Female

DRUGS (3)
  1. FERINJECT [Suspect]
     Active Substance: FERRIC CARBOXYMALTOSE
     Indication: Iron deficiency anaemia
     Dosage: INTENDED TO ADMINISTER 1000 MG BUT DUE TO THE DEVELOPED SYMPTOMS THE INFUSION WAS INTERRUPTED WHEN T
     Dates: start: 20240918, end: 20240918
  2. EPINEPHRINE BITARTRATE [Suspect]
     Active Substance: EPINEPHRINE BITARTRATE
     Indication: Anaphylactic reaction
     Dosage: 300 MICROGRAM (300 MCG)
     Route: 030
     Dates: start: 20240918, end: 20240918
  3. EPINEPHRINE [Suspect]
     Active Substance: EPINEPHRINE
     Indication: Anaphylactic reaction
     Dosage: 0.3 MG (ALSO REPORTED AS 0.3 ML)
     Route: 042
     Dates: start: 20240918, end: 20240918

REACTIONS (8)
  - Electrocardiogram T wave inversion [Unknown]
  - Troponin T increased [Unknown]
  - Electrocardiogram ST segment depression [Unknown]
  - Extrasystoles [Unknown]
  - Malaise [Unknown]
  - Anaphylactic reaction [Unknown]
  - Headache [Unknown]
  - Chest discomfort [Unknown]

NARRATIVE: CASE EVENT DATE: 20240918
